FAERS Safety Report 13613901 (Version 1)
Quarter: 2017Q2

REPORT INFORMATION
  Report Type: Spontaneous
  Country: US (occurrence: US)
  Receive Date: 20170606
  Receipt Date: 20170606
  Transmission Date: 20170830
  Serious: No
  Sender: FDA-Public Use
  Company Number: US-B.I. PHARMACEUTICALS,INC./RIDGEFIELD-2017-BI-030451

PATIENT

DRUGS (2)
  1. JARDIANCE [Suspect]
     Active Substance: EMPAGLIFLOZIN
     Indication: PRODUCT USED FOR UNKNOWN INDICATION
     Dosage: FORM STRENGTH: 25 MG; FORMULATION: TABLET ADMINISTRATION CORRECT? NR(NOT REPORTED) ACTION(S) TAKEN W
     Route: 048
  2. JARDIANCE [Suspect]
     Active Substance: EMPAGLIFLOZIN
     Dosage: FORM STRENGTH: 10MG; FORMULATION: TABLET ADMINISTRATION CORRECT? NR(NOT REPORTED) ACTION(S) TAKEN WI
     Route: 048

REACTIONS (1)
  - Increased appetite [Unknown]
